FAERS Safety Report 4730102-1 (Version None)
Quarter: 2005Q3

REPORT INFORMATION
  Report Type: 
  Country: None (occurrence: None)
  Receive Date: 20050801
  Receipt Date: 20050721
  Transmission Date: 20060218
  Serious: Yes (Other)
  Sender: FDA-Public Use
  Company Number: 200512045EU

PATIENT
  Age: 62 Year
  Sex: Female
  Weight: 67 kg

DRUGS (1)
  1. CLEXANE [Suspect]
     Indication: THROMBOSIS PROPHYLAXIS
     Dosage: DOSE: 1 SYRINGE
     Route: 058
     Dates: start: 20050716

REACTIONS (2)
  - DIARRHOEA [None]
  - VOMITING [None]
